FAERS Safety Report 10102554 (Version 2)
Quarter: 2014Q4

REPORT INFORMATION
  Report Type: Other
  Country: US (occurrence: US)
  Receive Date: 20140424
  Receipt Date: 20141031
  Transmission Date: 20150528
  Serious: Yes (Hospitalization, Other)
  Sender: FDA-Public Use
  Company Number: US-GSKPPD-2014GSK000371

PATIENT
  Age: 78 Year

DRUGS (3)
  1. AVANDIA [Suspect]
     Active Substance: ROSIGLITAZONE MALEATE
     Indication: DIABETES MELLITUS
     Route: 048
     Dates: start: 200111, end: 200202
  2. ATENOLOL. [Concomitant]
     Active Substance: ATENOLOL
  3. IMDUR [Concomitant]
     Active Substance: ISOSORBIDE MONONITRATE

REACTIONS (3)
  - Coronary artery disease [Recovered/Resolved]
  - Coronary arterial stent insertion [Unknown]
  - Vascular graft [Unknown]

NARRATIVE: CASE EVENT DATE: 20020218
